FAERS Safety Report 7979080-2 (Version None)
Quarter: 2011Q4

REPORT INFORMATION
  Report Type: 
  Country: None (occurrence: None)
  Receive Date: 20111214
  Receipt Date: 20111209
  Transmission Date: 20120403
  Serious: No
  Sender: FDA-Public Use
  Company Number: US-PFIZER INC-2011301612

PATIENT
  Sex: Female
  Weight: 77.6 kg

DRUGS (3)
  1. ROBITUSSIN DM [Suspect]
     Indication: COUGH
     Dosage: UNK
     Route: 048
     Dates: start: 20111201, end: 20111208
  2. SINGULAIR [Concomitant]
     Indication: ASTHMA
     Dosage: UNK
  3. AZITHROMYCIN [Suspect]
     Indication: COUGH
     Dosage: UNK
     Dates: start: 20111208

REACTIONS (2)
  - DRUG INEFFECTIVE [None]
  - COUGH [None]
